FAERS Safety Report 11767001 (Version 3)
Quarter: 2016Q1

REPORT INFORMATION
  Report Type: Report from Study
  Country: BR (occurrence: BR)
  Receive Date: 20151123
  Receipt Date: 20160114
  Transmission Date: 20160525
  Serious: Yes (Other)
  Sender: FDA-Public Use
  Company Number: BR-ABBVIE-15K-020-1480026-00

PATIENT
  Age: 35 Year
  Sex: Male
  Weight: 67 kg

DRUGS (3)
  1. NIMESULIDE [Concomitant]
     Active Substance: NIMESULIDE
     Indication: ANKYLOSING SPONDYLITIS
     Route: 048
     Dates: start: 201406, end: 201502
  2. METHOTREXATE [Suspect]
     Active Substance: METHOTREXATE
     Indication: ANKYLOSING SPONDYLITIS
     Route: 065
     Dates: start: 201406, end: 201509
  3. HUMIRA [Suspect]
     Active Substance: ADALIMUMAB
     Indication: ANKYLOSING SPONDYLITIS
     Route: 058
     Dates: start: 20150121, end: 20150911

REACTIONS (9)
  - Pulmonary tuberculosis [Recovering/Resolving]
  - Chest pain [Unknown]
  - Pain [Unknown]
  - Night sweats [Unknown]
  - Immunodeficiency [Unknown]
  - Arthralgia [Recovering/Resolving]
  - C-reactive protein abnormal [Unknown]
  - Spinal pain [Recovering/Resolving]
  - Pneumonia [Recovered/Resolved]

NARRATIVE: CASE EVENT DATE: 2015
